FAERS Safety Report 10359261 (Version 1)
Quarter: 2014Q3

REPORT INFORMATION
  Report Type: Spontaneous
  Country: US (occurrence: None)
  Receive Date: 20140731
  Receipt Date: 20140731
  Transmission Date: 20150326
  Serious: No
  Sender: FDA-Public Use
  Company Number: None

PATIENT
  Age: 1 Year
  Sex: Female
  Weight: 9.98 kg

DRUGS (1)
  1. EPIPEN JR [Suspect]
     Active Substance: EPINEPHRINE

REACTIONS (3)
  - Injury associated with device [None]
  - Skin discolouration [None]
  - Panic reaction [None]

NARRATIVE: CASE EVENT DATE: 20121223
